FAERS Safety Report 23085447 (Version 2)
Quarter: 2023Q4

REPORT INFORMATION
  Report Type: Spontaneous
  Country: US (occurrence: US)
  Receive Date: 20231019
  Receipt Date: 20231221
  Transmission Date: 20240110
  Serious: No
  Sender: FDA-Public Use
  Company Number: US-BRISTOL-MYERS SQUIBB COMPANY-2023-148750

PATIENT
  Age: 83 Year
  Sex: Male

DRUGS (2)
  1. VIDAZA [Suspect]
     Active Substance: AZACITIDINE
     Indication: Acute leukaemia
     Dosage: DOSE : 131.3MG;     FREQ : OLD: DAILY DAYS 1-5 EVERY 28 DAYS ?NEW: DAILY DAYS 1-7 EVERY 28 DAYS
  2. VIDAZA [Suspect]
     Active Substance: AZACITIDINE
     Indication: Acute myeloid leukaemia
     Dosage: DAYS 1-7 ON A 28 DAY CYCLE
     Route: 042

REACTIONS (1)
  - Off label use [Unknown]
